FAERS Safety Report 24717847 (Version 1)
Quarter: 2024Q4

REPORT INFORMATION
  Report Type: Spontaneous
  Country: US (occurrence: US)
  Receive Date: 20241210
  Receipt Date: 20241210
  Transmission Date: 20250114
  Serious: No
  Sender: RECKITT BENCKISER
  Company Number: US-PROD-AS2-212756134-20-24-USA-RB-0006734

PATIENT
  Sex: Female

DRUGS (2)
  1. DELSYM [Suspect]
     Active Substance: DEXTROMETHORPHAN
     Indication: Cough
     Dosage: UNKNOWN
     Route: 048
  2. DELSYM [Suspect]
     Active Substance: DEXTROMETHORPHAN
     Indication: Nasopharyngitis

REACTIONS (2)
  - Cough [Not Recovered/Not Resolved]
  - Product complaint [Unknown]
